FAERS Safety Report 10199589 (Version 1)
Quarter: 2014Q2

REPORT INFORMATION
  Report Type: Spontaneous
  Country: US (occurrence: None)
  Receive Date: 20140523
  Receipt Date: 20140523
  Transmission Date: 20141212
  Serious: No
  Sender: FDA-Public Use
  Company Number: None

PATIENT
  Age: 54 Year
  Sex: Male
  Weight: 104.33 kg

DRUGS (1)
  1. TAMIFLU [Suspect]
     Indication: INFLUENZA
     Dosage: 2 X DAILY TWICE DAILY TAKEN BY MOUTH
     Route: 048
     Dates: start: 20140430, end: 20140505

REACTIONS (3)
  - Skin irritation [None]
  - Aphthous stomatitis [None]
  - Pharyngeal disorder [None]
